FAERS Safety Report 26027374 (Version 1)
Quarter: 2025Q4

REPORT INFORMATION
  Report Type: Spontaneous
  Country: US (occurrence: US)
  Receive Date: 20251111
  Receipt Date: 20251111
  Transmission Date: 20260117
  Serious: No
  Sender: BAYER HEALTHCARE PHARMACEUTICALS INC.
  Company Number: US-BAYER-2025A146982

PATIENT
  Age: 35 Year
  Sex: Male

DRUGS (3)
  1. VITRAKVI [Suspect]
     Active Substance: LAROTRECTINIB
     Indication: Metastatic salivary gland cancer
     Dosage: 100 MG, BID
     Dates: start: 201705
  2. VITRAKVI [Suspect]
     Active Substance: LAROTRECTINIB
     Indication: Metastatic salivary gland cancer
     Dosage: UNK
  3. VITRAKVI [Suspect]
     Active Substance: LAROTRECTINIB
     Indication: Metastatic salivary gland cancer
     Dosage: UNK

REACTIONS (3)
  - Drug withdrawal syndrome [None]
  - Myalgia [Recovering/Resolving]
  - Arthralgia [Recovering/Resolving]
